FAERS Safety Report 21961214 (Version 1)
Quarter: 2023Q1

REPORT INFORMATION
  Report Type: Other
  Country: CA (occurrence: CA)
  Receive Date: 20230207
  Receipt Date: 20230207
  Transmission Date: 20230418
  Serious: Yes (Other)
  Sender: FDA-Public Use
  Company Number: CA-GLENMARK PHARMACEUTICALS-2023GMK078562

PATIENT

DRUGS (1)
  1. GABAPENTIN [Suspect]
     Active Substance: GABAPENTIN
     Indication: Product used for unknown indication
     Dosage: 100 MILLIGRAM, 1 EVERY 1 DAY
     Route: 065

REACTIONS (6)
  - Illness [Unknown]
  - Dystonia [Unknown]
  - Muscle twitching [Unknown]
  - Palpitations [Unknown]
  - Tremor [Unknown]
  - Nausea [Unknown]
